FAERS Safety Report 11230253 (Version 8)
Quarter: 2016Q2

REPORT INFORMATION
  Report Type: Report from Study
  Country: CA (occurrence: CA)
  Receive Date: 20150701
  Receipt Date: 20160615
  Transmission Date: 20160815
  Serious: Yes (Other)
  Sender: FDA-Public Use
  Company Number: PHHY2013CA043038

PATIENT
  Age: 80 Year
  Sex: Male

DRUGS (9)
  1. HYDRALAZINE [Concomitant]
     Active Substance: HYDRALAZINE HYDROCHLORIDE
     Dosage: 50 MG, QID (AT BREAKFAST, LUNCH, DINNER AND BEFORE BEDTIME)
     Route: 065
     Dates: start: 20140205
  2. HYDRALAZINE [Concomitant]
     Active Substance: HYDRALAZINE HYDROCHLORIDE
     Dosage: 3 DF, QD ((2 TABS IN THE MORNING AND 1 TAB IN THE EVENING)
     Route: 065
  3. CORTIZONE 10 [Concomitant]
     Active Substance: HYDROCORTISONE
     Indication: MUSCULOSKELETAL PAIN
     Route: 065
  4. HYDRALAZINE [Concomitant]
     Active Substance: HYDRALAZINE HYDROCHLORIDE
     Dosage: 2 DF, TID (BREAKFAST, LUNCH, DINNER)
     Route: 065
  5. SANDOSTATIN LAR DEPOT [Suspect]
     Active Substance: OCTREOTIDE ACETATE
     Dosage: 30 MG, QMO (EVERY 4 WEEKS )
     Route: 030
  6. SANDOSTATIN LAR DEPOT [Suspect]
     Active Substance: OCTREOTIDE ACETATE
     Indication: NEUROENDOCRINE TUMOUR
     Dosage: 40 MG, QMO
     Route: 030
     Dates: start: 20130215
  7. HYDRALAZINE [Concomitant]
     Active Substance: HYDRALAZINE HYDROCHLORIDE
     Indication: BLOOD PRESSURE SYSTOLIC INCREASED
     Dosage: 50 MG, BID
     Route: 065
  8. SANDOSTATIN LAR DEPOT [Suspect]
     Active Substance: OCTREOTIDE ACETATE
     Dosage: 20 MG, QMO
     Route: 030
  9. SANDOSTATIN LAR DEPOT [Suspect]
     Active Substance: OCTREOTIDE ACETATE
     Dosage: 40 MG, QMO (EVERY 4 WEEKS)
     Route: 030

REACTIONS (25)
  - Malignant neoplasm progression [Unknown]
  - Tendonitis [Unknown]
  - Eye disorder [Unknown]
  - Faeces hard [Unknown]
  - Blood pressure systolic increased [Recovering/Resolving]
  - Musculoskeletal pain [Recovering/Resolving]
  - Frequent bowel movements [Recovering/Resolving]
  - Heart rate decreased [Unknown]
  - Depressed mood [Unknown]
  - Rash [Unknown]
  - Drug effect decreased [Unknown]
  - Renal neoplasm [Unknown]
  - Blood pressure diastolic decreased [Unknown]
  - Flatulence [Unknown]
  - Deafness [Unknown]
  - Furuncle [Unknown]
  - Blood pressure systolic decreased [Unknown]
  - Neoplasm [Unknown]
  - Excessive cerumen production [Not Recovered/Not Resolved]
  - Blood potassium decreased [Recovering/Resolving]
  - Diarrhoea [Recovering/Resolving]
  - Blood glucose increased [Unknown]
  - Stress [Unknown]
  - Mass [Unknown]
  - Arthralgia [Unknown]

NARRATIVE: CASE EVENT DATE: 20130423
